FAERS Safety Report 10326206 (Version 2)
Quarter: 2015Q1

REPORT INFORMATION
  Report Type: Other
  Country: US (occurrence: US)
  Receive Date: 20140720
  Receipt Date: 20150323
  Transmission Date: 20150720
  Serious: Yes (Hospitalization, Other)
  Sender: FDA-Public Use
  Company Number: US-GSKPPD-2014GSK034697

PATIENT
  Age: 58 Year
  Sex: Male

DRUGS (9)
  1. PROCARDIA [Concomitant]
     Active Substance: NIFEDIPINE
     Dates: end: 200609
  2. ASPIRIN. [Concomitant]
     Active Substance: ASPIRIN
     Route: 048
  3. LASIX [Concomitant]
     Active Substance: FUROSEMIDE
     Dates: end: 200609
  4. NIFEDIPINE. [Concomitant]
     Active Substance: NIFEDIPINE
     Dates: end: 200609
  5. BIDIL [Concomitant]
     Active Substance: HYDRALAZINE HYDROCHLORIDE\ISOSORBIDE DINITRATE
     Dosage: 112.5 PER 36 MG
     Route: 048
  6. AVANDIA [Suspect]
     Active Substance: ROSIGLITAZONE MALEATE
     Indication: DIABETES MELLITUS
     Dosage: DATES OF AVANDIA USE COULD NOT BE CONFIRMED IN RECORDS REVIEWED
     Route: 048
     Dates: end: 200609
  7. COREG [Concomitant]
     Active Substance: CARVEDILOL
     Route: 048
  8. COZAAR [Concomitant]
     Active Substance: LOSARTAN POTASSIUM
     Dates: end: 200609
  9. TOPROL XL [Concomitant]
     Active Substance: METOPROLOL SUCCINATE
     Dates: end: 200609

REACTIONS (1)
  - Cardiac failure congestive [Recovered/Resolved]

NARRATIVE: CASE EVENT DATE: 20060901
